FAERS Safety Report 10299359 (Version 1)
Quarter: 2014Q3

REPORT INFORMATION
  Report Type: Report from Study
  Country: US (occurrence: US)
  Receive Date: 20140711
  Receipt Date: 20140711
  Transmission Date: 20150326
  Serious: Yes (Hospitalization, Other)
  Sender: FDA-Public Use
  Company Number: US-ABBVIE-14P-163-1255720-00

PATIENT
  Sex: Female
  Weight: 48.12 kg

DRUGS (2)
  1. HUMIRA [Suspect]
     Active Substance: ADALIMUMAB
     Indication: COLITIS ULCERATIVE
     Dates: start: 2014, end: 2014
  2. HUMIRA [Suspect]
     Active Substance: ADALIMUMAB
     Indication: OFF LABEL USE

REACTIONS (3)
  - Off label use [Recovered/Resolved]
  - Drug ineffective [Unknown]
  - Colectomy [Unknown]

NARRATIVE: CASE EVENT DATE: 2014
